FAERS Safety Report 10213990 (Version 1)
Quarter: 2014Q2

REPORT INFORMATION
  Report Type: Spontaneous
  Country: IT (occurrence: IT)
  Receive Date: 20140603
  Receipt Date: 20140603
  Transmission Date: 20141212
  Serious: Yes (Other)
  Sender: FDA-Public Use
  Company Number: IT-WATSON-2014-11334

PATIENT
  Age: 84 Year
  Sex: Female

DRUGS (3)
  1. METFORMIN (UNKNOWN) [Suspect]
     Indication: DIABETES MELLITUS
     Dosage: 3 DF, DAILY
     Route: 048
     Dates: start: 20130101, end: 20130518
  2. REPAGLINIDE (UNKNOWN) [Suspect]
     Indication: DIABETES MELLITUS
     Dosage: 3 DF, DAILY
     Route: 048
     Dates: start: 20130101, end: 20130518
  3. HUMULIN [Suspect]
     Indication: DIABETES MELLITUS
     Dosage: 45 UI (LOWER THAN 100), DAILY
     Route: 058
     Dates: start: 20130101, end: 20130518

REACTIONS (1)
  - Hypoglycaemia [Recovering/Resolving]
